FAERS Safety Report 9648832 (Version 3)
Quarter: 2013Q4

REPORT INFORMATION
  Report Type: Spontaneous
  Country: US (occurrence: US)
  Receive Date: 20131028
  Receipt Date: 20131129
  Transmission Date: 20140711
  Serious: Yes (Death)
  Sender: FDA-Public Use
  Company Number: US-ASTRAZENECA-2013SE78877

PATIENT
  Age: 26549 Day
  Sex: Male
  Weight: 70.3 kg

DRUGS (13)
  1. SEROQUEL [Suspect]
     Indication: MAJOR DEPRESSION
     Route: 048
  2. SEROQUEL [Suspect]
     Indication: ANXIETY
     Route: 048
  3. SEROQUEL [Suspect]
     Indication: MAJOR DEPRESSION
     Route: 048
     Dates: start: 20130828
  4. SEROQUEL [Suspect]
     Indication: ANXIETY
     Route: 048
     Dates: start: 20130828
  5. SEROQUEL [Suspect]
     Indication: MAJOR DEPRESSION
     Route: 048
     Dates: start: 20130828, end: 20130910
  6. SEROQUEL [Suspect]
     Indication: ANXIETY
     Route: 048
     Dates: start: 20130828, end: 20130910
  7. SIMVASTATIN [Concomitant]
     Indication: BLOOD CHOLESTEROL ABNORMAL
  8. DIOVAN [Concomitant]
     Indication: BLOOD PRESSURE ABNORMAL
  9. LORAZEPAM [Concomitant]
     Indication: ANXIETY
     Dosage: 0.5 TO 1 MG HS
     Dates: start: 201305, end: 20130910
  10. LORAZEPAM [Concomitant]
     Indication: INSOMNIA
     Dosage: 0.5 TO 1 MG HS
     Dates: start: 201305, end: 20130910
  11. REMERON [Concomitant]
     Indication: DEPRESSION
     Dates: start: 201305, end: 20130910
  12. REMERON [Concomitant]
     Indication: ANXIETY
     Dates: start: 201305, end: 20130910
  13. REMERON [Concomitant]
     Indication: INSOMNIA
     Dates: start: 201305, end: 20130910

REACTIONS (1)
  - Completed suicide [Fatal]
